FAERS Safety Report 15562469 (Version 1)
Quarter: 2018Q4

REPORT INFORMATION
  Report Type: Spontaneous
  Country: US (occurrence: US)
  Receive Date: 20181029
  Receipt Date: 20181029
  Transmission Date: 20190205
  Serious: No
  Sender: FDA-Public Use
  Company Number: US-SUNOVION-2018SUN004101

PATIENT
  Sex: Female
  Weight: 56.69 kg

DRUGS (9)
  1. LATUDA [Suspect]
     Active Substance: LURASIDONE HYDROCHLORIDE
     Indication: BIPOLAR DISORDER
     Dosage: 20 MG, UNK
     Route: 048
  2. IBUPROFEN. [Concomitant]
     Active Substance: IBUPROFEN
     Indication: PAIN
     Dosage: 400 MG, AS NECESSARY
     Route: 048
  3. NEURONTIN [Concomitant]
     Active Substance: GABAPENTIN
     Indication: RESTLESS LEGS SYNDROME
     Dosage: 400 MG, BID
     Route: 048
  4. MUCINEX [Concomitant]
     Active Substance: GUAIFENESIN
     Indication: SEASONAL ALLERGY
     Dosage: 400 MG, UNK
  5. MULTI-VIT [Concomitant]
     Active Substance: VITAMINS
     Indication: SUPPLEMENTATION THERAPY
     Dosage: UNK
  6. LATUDA [Suspect]
     Active Substance: LURASIDONE HYDROCHLORIDE
     Indication: MANIA
  7. TOPAMAX [Concomitant]
     Active Substance: TOPIRAMATE
     Dosage: 50 MG AM, 100 MG PM
     Route: 048
  8. TOPAMAX [Concomitant]
     Active Substance: TOPIRAMATE
     Dosage: 50 MG AM, 100 MG PM
     Route: 048
  9. CALCIUM [Concomitant]
     Active Substance: CALCIUM
     Indication: SUPPLEMENTATION THERAPY
     Dosage: 1200 MG, BID
     Route: 048

REACTIONS (5)
  - Bipolar I disorder [Unknown]
  - Aggression [Unknown]
  - Terminal insomnia [Unknown]
  - Drug ineffective [Unknown]
  - Psychomotor hyperactivity [Unknown]
